FAERS Safety Report 7545225-1 (Version None)
Quarter: 2011Q2

REPORT INFORMATION
  Report Type: 
  Country: None (occurrence: None)
  Receive Date: 20110610
  Receipt Date: 20110610
  Transmission Date: 20111010
  Serious: No
  Sender: FDA-Public Use
  Company Number: None

PATIENT
  Sex: Female
  Weight: 68.2 kg

DRUGS (4)
  1. CRESTOR [Suspect]
     Indication: BLOOD CHOLESTEROL INCREASED
     Dosage: 30MG CRESTOR 1X/DY
  2. CRESTOR [Suspect]
     Indication: CORONARY ARTERY DISEASE
     Dosage: 30MG CRESTOR 1X/DY
  3. LIPITOR [Concomitant]
  4. ZOCOR [Suspect]

REACTIONS (1)
  - MYALGIA [None]
